FAERS Safety Report 20382777 (Version 4)
Quarter: 2022Q2

REPORT INFORMATION
  Report Type: Spontaneous
  Country: US (occurrence: US)
  Receive Date: 20220127
  Receipt Date: 20220428
  Transmission Date: 20220720
  Serious: No
  Sender: FDA-Public Use
  Company Number: US-PFIZER INC-202200055762

PATIENT
  Age: 68 Year
  Sex: Female
  Weight: 70.295 kg

DRUGS (2)
  1. ESTRING [Suspect]
     Active Substance: ESTRADIOL
     Indication: Vulvovaginal dryness
     Dosage: 2 MG, UNK
     Dates: start: 2017, end: 20220101
  2. ESTRING [Suspect]
     Active Substance: ESTRADIOL
     Indication: Bacterial infection

REACTIONS (1)
  - Therapeutic response unexpected [Unknown]
